FAERS Safety Report 4583725-7 (Version None)
Quarter: 2005Q1

REPORT INFORMATION
  Report Type: 
  Country: None (occurrence: None)
  Receive Date: 20050211
  Receipt Date: 20050126
  Transmission Date: 20050727
  Serious: Yes (Other)
  Sender: FDA-Public Use
  Company Number: 8008672

PATIENT
  Age: 70 Year
  Sex: Female
  Weight: 75 kg

DRUGS (4)
  1. KEPPRA [Suspect]
     Indication: CONVULSION
     Dosage: 500 MG 2/D PO
     Route: 048
     Dates: start: 20031201
  2. DIOVAN [Concomitant]
  3. THYROID HORMONE [Concomitant]
  4. BENADRYL [Concomitant]

REACTIONS (3)
  - HALLUCINATION, VISUAL [None]
  - HEADACHE [None]
  - MEDICATION ERROR [None]
